FAERS Safety Report 8941799 (Version 2)
Quarter: 2013Q1

REPORT INFORMATION
  Report Type: Spontaneous
  Country: JP (occurrence: JP)
  Receive Date: 20121203
  Receipt Date: 20130131
  Transmission Date: 20140127
  Serious: Yes (Death, Other)
  Sender: FDA-Public Use
  Company Number: JP-ELI_LILLY_AND_COMPANY-JP201211006991

PATIENT
  Age: 77 Year
  Sex: Male

DRUGS (1)
  1. GEMZAR [Suspect]
     Indication: BLADDER CANCER
     Dosage: 1500 MG, UNK
     Route: 042
     Dates: start: 20110628, end: 20110705

REACTIONS (2)
  - Interstitial lung disease [Fatal]
  - Bone marrow failure [Unknown]
